FAERS Safety Report 7887307-0 (Version None)
Quarter: 2011Q4

REPORT INFORMATION
  Report Type: 
  Country: None (occurrence: None)
  Receive Date: 20111102
  Receipt Date: 20110718
  Transmission Date: 20120403
  Serious: No
  Sender: FDA-Public Use
  Company Number: US-AMGEN-USASP2011036453

PATIENT
  Age: 64 Year
  Sex: Female
  Weight: 81.633 kg

DRUGS (18)
  1. PREDNISONE [Concomitant]
     Dosage: 1 MG, UNK
  2. VERAPAMIL [Concomitant]
     Dosage: 100 MG, UNK
  3. SEREVENT [Concomitant]
     Dosage: 50 MUG, UNK
  4. HYDROXYZINE [Concomitant]
     Dosage: 10 MG, UNK
  5. PRAVASTATIN [Concomitant]
     Dosage: 10 MG, UNK
  6. EPIPEN [Concomitant]
     Dosage: 0.3 MG, UNK
  7. ENBREL [Suspect]
     Indication: PRODUCT USED FOR UNKNOWN INDICATION
     Dosage: 25 MG, 2 TIMES/WK
  8. TIZANIDINE HCL [Concomitant]
     Dosage: 2 MG, UNK
  9. FLUTICASONE PROPIONATE [Concomitant]
     Dosage: 50 MUG, UNK
  10. TYLENOL (CAPLET) [Concomitant]
     Dosage: 500 MG, UNK
  11. PULMICORT [Concomitant]
     Dosage: 200 MUG, UNK
  12. MULTIVITAMIN                       /00097801/ [Concomitant]
  13. CLOBEX                             /00012002/ [Concomitant]
  14. PRIMIDONE [Suspect]
  15. BOTOX [Concomitant]
     Dosage: 100 IU, UNK
  16. COLACE [Concomitant]
     Dosage: 50 MG, UNK
  17. CALCIUM [Concomitant]
  18. AVAPRO [Concomitant]
     Dosage: 75 MG, UNK

REACTIONS (2)
  - HYPERHIDROSIS [None]
  - BLOOD PRESSURE INCREASED [None]
